FAERS Safety Report 7957399-9 (Version None)
Quarter: 2011Q4

REPORT INFORMATION
  Report Type: 
  Country: None (occurrence: None)
  Receive Date: 20111205
  Receipt Date: 20111201
  Transmission Date: 20120403
  Serious: Yes (Hospitalization)
  Sender: FDA-Public Use
  Company Number: US-MERCK-1109USA00848

PATIENT
  Age: 79 Year
  Sex: Female

DRUGS (4)
  1. ASPIRIN [Concomitant]
     Route: 048
  2. FOSAMAX [Suspect]
     Indication: OSTEOPOROSIS
     Route: 048
     Dates: start: 20000101, end: 20100101
  3. CELEBREX [Concomitant]
     Route: 048
     Dates: start: 19960101
  4. VITAMINS (UNSPECIFIED) [Concomitant]
     Route: 048

REACTIONS (7)
  - HYPERTENSION [None]
  - FEMUR FRACTURE [None]
  - FACIAL BONES FRACTURE [None]
  - DRUG HYPERSENSITIVITY [None]
  - FALL [None]
  - TOOTH DISORDER [None]
  - HAEMOGLOBIN DECREASED [None]
